FAERS Safety Report 25467640 (Version 1)
Quarter: 2025Q2

REPORT INFORMATION
  Report Type: Spontaneous
  Country: US (occurrence: US)
  Receive Date: 20250623
  Receipt Date: 20250623
  Transmission Date: 20250717
  Serious: Yes (Other)
  Sender: TEVA
  Company Number: US-TEVA-VS-3343582

PATIENT
  Sex: Female

DRUGS (1)
  1. ACETAMINOPHEN\HYDROCODONE [Suspect]
     Active Substance: ACETAMINOPHEN\HYDROCODONE
     Indication: Product used for unknown indication
     Route: 065
     Dates: start: 2007, end: 2008

REACTIONS (4)
  - Renal failure [Not Recovered/Not Resolved]
  - Recalled product administered [Unknown]
  - Hepatitis [Not Recovered/Not Resolved]
  - Organ failure [Not Recovered/Not Resolved]

NARRATIVE: CASE EVENT DATE: 20070101
